FAERS Safety Report 24037581 (Version 1)
Quarter: 2024Q3

REPORT INFORMATION
  Report Type: Spontaneous
  Country: PK (occurrence: PK)
  Receive Date: 20240702
  Receipt Date: 20240702
  Transmission Date: 20241017
  Serious: Yes (Death, Hospitalization)
  Sender: NOVO NORDISK
  Company Number: PK-NOVOPROD-1244665

PATIENT
  Age: 8 Year
  Sex: Male
  Weight: 60 kg

DRUGS (1)
  1. OZEMPIC [Suspect]
     Active Substance: SEMAGLUTIDE
     Indication: Obesity
     Dosage: 0.25 MG
     Dates: start: 20231031, end: 2023

REACTIONS (3)
  - Epilepsy [Fatal]
  - Product use in unapproved indication [Recovered/Resolved]
  - Product use issue [Recovered/Resolved]

NARRATIVE: CASE EVENT DATE: 20231031
